FAERS Safety Report 6435151-3 (Version None)
Quarter: 2009Q4

REPORT INFORMATION
  Report Type: 
  Country: None (occurrence: None)
  Receive Date: 20091110
  Receipt Date: 20090820
  Transmission Date: 20100525
  Serious: Yes (Other)
  Sender: FDA-Public Use
  Company Number: US-BRISTOL-MYERS SQUIBB COMPANY-14750384

PATIENT
  Age: 70 Year
  Sex: Female
  Weight: 46 kg

DRUGS (10)
  1. IXEMPRA KIT [Suspect]
     Indication: BREAST CANCER METASTATIC
     Dates: start: 20090820
  2. ABRAXANE [Concomitant]
     Indication: BREAST CANCER METASTATIC
  3. AVASTIN [Concomitant]
     Indication: BREAST CANCER METASTATIC
  4. ZOMETA [Concomitant]
     Indication: BREAST CANCER METASTATIC
  5. SYNTHROID [Concomitant]
  6. PROTONIX [Concomitant]
  7. SPIRIVA [Concomitant]
     Route: 055
  8. XOPENEX [Concomitant]
     Route: 055
  9. BENADRYL [Concomitant]
     Indication: PREMEDICATION
  10. STEROIDS [Concomitant]
     Indication: PREMEDICATION

REACTIONS (3)
  - EYE SWELLING [None]
  - OCULAR HYPERAEMIA [None]
  - SWELLING FACE [None]
